FAERS Safety Report 21237220 (Version 2)
Quarter: 2022Q3

REPORT INFORMATION
  Report Type: Report from Study
  Country: JP (occurrence: JP)
  Receive Date: 20220822
  Receipt Date: 20220829
  Transmission Date: 20221027
  Serious: Yes (Death, Life-Threatening, Hospitalization, Disabling)
  Sender: FDA-Public Use
  Company Number: JP-JNJFOC-20220818386

PATIENT
  Age: 77 Year
  Sex: Male

DRUGS (47)
  1. BORTEZOMIB [Suspect]
     Active Substance: BORTEZOMIB
     Indication: Plasma cell myeloma
     Dosage: 1.3 MILLIGRAM/SQ. METER
     Route: 058
     Dates: start: 20190803, end: 20200117
  2. DARATUMUMAB [Suspect]
     Active Substance: DARATUMUMAB
     Indication: Plasma cell myeloma
     Dosage: UNK
     Route: 058
  3. LENALIDOMIDE [Suspect]
     Active Substance: LENALIDOMIDE
     Indication: Plasma cell myeloma
     Dosage: 10 MILLIGRAM
     Route: 048
     Dates: start: 20190813, end: 20220724
  4. DEXAMETHASONE [Suspect]
     Active Substance: DEXAMETHASONE
     Indication: Plasma cell myeloma
     Dosage: 12 MILLIGRAM
     Route: 048
     Dates: start: 20190813, end: 20220625
  5. ASPIRIN [Concomitant]
     Active Substance: ASPIRIN
     Indication: Thrombosis prophylaxis
     Dosage: 100 MILLIGRAM, QD
     Route: 048
     Dates: start: 20190813
  6. ACYCLOVIR [Concomitant]
     Active Substance: ACYCLOVIR
     Indication: Infection prophylaxis
     Dosage: 200 MILLIGRAM, QD
     Route: 048
     Dates: start: 20190813
  7. NEXIUM [Concomitant]
     Active Substance: ESOMEPRAZOLE MAGNESIUM
     Indication: Prophylaxis
     Dosage: 20 MILLIGRAM, QD
     Route: 048
     Dates: start: 20190813
  8. MAGNESIUM OXIDE [Concomitant]
     Active Substance: MAGNESIUM OXIDE
     Indication: Constipation
     Dosage: 500 MILLIGRAM
     Route: 048
     Dates: start: 20190814
  9. LUNESTA [Concomitant]
     Active Substance: ESZOPICLONE
     Indication: Insomnia
     Dosage: 1 MILLIGRAM
     Route: 048
     Dates: start: 20190814
  10. BILASTINE [Concomitant]
     Active Substance: BILASTINE
     Indication: Rash
     Dosage: 20 MILLIGRAM, QD
     Route: 048
     Dates: start: 20190826, end: 20190902
  11. METHYLCOBALAMIN [Concomitant]
     Active Substance: METHYLCOBALAMIN
     Indication: Peripheral sensory neuropathy
     Dosage: 500 MILLIGRAM
     Route: 048
     Dates: start: 20191015
  12. URSODIOL [Concomitant]
     Active Substance: URSODIOL
     Indication: Alanine aminotransferase increased
     Dosage: 100 MILLIGRAM
     Route: 048
     Dates: start: 20190611, end: 20190909
  13. URSODIOL [Concomitant]
     Active Substance: URSODIOL
     Indication: Prophylaxis
     Dosage: 100 MILLIGRAM
     Route: 048
     Dates: start: 20190910, end: 20200322
  14. URSODIOL [Concomitant]
     Active Substance: URSODIOL
     Dosage: 200 MILLIGRAM
     Route: 048
     Dates: start: 20220711
  15. THYROIDINE [Concomitant]
     Indication: Hypothyroidism
     Dosage: 50 MILLIGRAM
     Route: 048
     Dates: start: 20210907, end: 20211108
  16. THYROIDINE [Concomitant]
     Dosage: 100 MICROGRAM, QD
     Route: 048
     Dates: start: 20211109, end: 20220124
  17. THYROIDINE [Concomitant]
     Dosage: 125 MICROGRAM, QD
     Route: 048
     Dates: start: 20220125, end: 20220711
  18. THYROIDINE [Concomitant]
     Dosage: 112.5 MILLIGRAM, QD
     Route: 048
     Dates: start: 20220712
  19. DEXTROSE\SODIUM CHLORIDE\SODIUM LACTATE [Concomitant]
     Active Substance: DEXTROSE\SODIUM CHLORIDE\SODIUM LACTATE
     Indication: Decreased appetite
     Dosage: 500 MILLILITER
     Route: 065
     Dates: start: 20220725
  20. CEFDINIR [Concomitant]
     Active Substance: CEFDINIR
     Indication: Infection prophylaxis
     Dosage: 100 MILLIGRAM
     Route: 048
     Dates: start: 20190722, end: 20190725
  21. POLAPREZINC [Concomitant]
     Active Substance: POLAPREZINC
     Indication: Zinc deficiency
     Dosage: 75 MILLIGRAM
     Route: 048
     Dates: start: 20190724, end: 20190809
  22. SULFAMETHOXAZOLE\TRIMETHOPRIM [Concomitant]
     Active Substance: SULFAMETHOXAZOLE\TRIMETHOPRIM
     Indication: Infection prophylaxis
     Dosage: UNK
     Route: 048
     Dates: start: 20190813, end: 20190822
  23. SULFAMETHOXAZOLE\TRIMETHOPRIM [Concomitant]
     Active Substance: SULFAMETHOXAZOLE\TRIMETHOPRIM
     Dosage: UNK, 1/WEEK
     Route: 048
     Dates: start: 20190925, end: 20191004
  24. SULFAMETHOXAZOLE\TRIMETHOPRIM [Concomitant]
     Active Substance: SULFAMETHOXAZOLE\TRIMETHOPRIM
     Dosage: UNK, 1/WEEK
     Route: 048
     Dates: start: 20191010, end: 20191010
  25. SULFAMETHOXAZOLE\TRIMETHOPRIM [Concomitant]
     Active Substance: SULFAMETHOXAZOLE\TRIMETHOPRIM
     Dosage: UNK
     Route: 048
     Dates: start: 20191017
  26. NOVOLIN R [Concomitant]
     Active Substance: INSULIN HUMAN
     Indication: Hyperglycaemia
     Dosage: UNK
     Route: 058
     Dates: start: 20190813, end: 20190823
  27. SODIUM PICOSULFATE [Concomitant]
     Active Substance: SODIUM PICOSULFATE
     Indication: Constipation
     Dosage: UNK
     Route: 048
     Dates: start: 20190814, end: 20190906
  28. AMOXICILLIN [Concomitant]
     Active Substance: AMOXICILLIN
     Indication: Infection prophylaxis
     Dosage: 250 MILLIGRAM, QD
     Route: 048
     Dates: start: 20190820, end: 20190820
  29. AMOXICILLIN [Concomitant]
     Active Substance: AMOXICILLIN
     Dosage: 250 MILLIGRAM, QD
     Route: 048
     Dates: start: 20190821, end: 20190822
  30. Myser [Concomitant]
     Indication: Rash
     Dosage: UNK
     Route: 062
     Dates: start: 20190826, end: 20190901
  31. ZOLEDRONIC ACID [Concomitant]
     Active Substance: ZOLEDRONIC ACID
     Indication: Prophylaxis
     Dosage: 4 MILLIGRAM, MONTHLY
     Route: 042
     Dates: start: 20190919, end: 20210222
  32. INFLUENZA VIRUS VACCINE [Concomitant]
     Active Substance: INFLUENZA VIRUS VACCINE
     Indication: Antiviral prophylaxis
     Dosage: 0.5 MILLILITER, QD
     Route: 058
     Dates: start: 20191105, end: 20191105
  33. INFLUENZA VIRUS VACCINE [Concomitant]
     Active Substance: INFLUENZA VIRUS VACCINE
     Dosage: 0.5 MILLILITER, QD
     Route: 058
     Dates: start: 20201007, end: 20201007
  34. GATIFLOXACIN [Concomitant]
     Active Substance: GATIFLOXACIN
     Indication: Prophylaxis
     Dosage: 1 GTT DROPS
     Route: 047
     Dates: start: 20210605, end: 20210608
  35. GATIFLOXACIN [Concomitant]
     Active Substance: GATIFLOXACIN
     Dosage: 1 GTT DROPS
     Route: 047
     Dates: start: 20210619, end: 20210622
  36. DEXAMETHASONE [Concomitant]
     Active Substance: DEXAMETHASONE
     Indication: Prophylaxis
     Dosage: 1 GTT DROPS
     Route: 047
     Dates: start: 20210609, end: 20210622
  37. MOXIFLOXACIN [Concomitant]
     Active Substance: MOXIFLOXACIN
     Indication: Prophylaxis
     Dosage: UNK
     Route: 047
     Dates: start: 20210609, end: 20210622
  38. MOXIFLOXACIN [Concomitant]
     Active Substance: MOXIFLOXACIN
     Dosage: UNK
     Route: 047
     Dates: start: 20210623, end: 20210731
  39. FLUOROMETHOLONE [Concomitant]
     Active Substance: FLUOROMETHOLONE
     Indication: Prophylaxis
     Dosage: UNK
     Route: 047
     Dates: start: 20210623, end: 20210731
  40. BROMFENAC [Concomitant]
     Active Substance: BROMFENAC SODIUM
     Indication: Prophylaxis
     Dosage: 1 GTT DROPS
     Route: 047
     Dates: start: 20210609, end: 20210622
  41. BROMFENAC [Concomitant]
     Active Substance: BROMFENAC SODIUM
     Dosage: 1 GTT DROPS
     Route: 047
     Dates: start: 20210623, end: 20210731
  42. COMIRNATY [Concomitant]
     Active Substance: TOZINAMERAN
     Indication: Prophylaxis
     Dosage: 0.3 MILLILITER, QD
     Route: 030
     Dates: start: 20210726, end: 20210726
  43. COMIRNATY [Concomitant]
     Active Substance: TOZINAMERAN
     Dosage: 0.3 MILLILITER, QD
     Route: 030
     Dates: start: 20210816, end: 20210816
  44. COMIRNATY [Concomitant]
     Active Substance: TOZINAMERAN
     Dosage: 0.3 MILLILITER, QD
     Route: 030
     Dates: start: 20220326, end: 20220326
  45. BIFIDOBACTERIUM BIFIDUM [Concomitant]
     Active Substance: BIFIDOBACTERIUM BIFIDUM
     Indication: Antidiarrhoeal supportive care
     Dosage: 1 GRAM
     Route: 048
  46. LEVOTHYROXINE SODIUM [Concomitant]
     Active Substance: LEVOTHYROXINE SODIUM
     Indication: Thyroid disorder
     Dosage: 112.5 MILLIGRAM, QD
     Route: 048
     Dates: start: 20220612
  47. DEXTROSE\SODIUM CHLORIDE [Concomitant]
     Active Substance: DEXTROSE\SODIUM CHLORIDE
     Indication: Decreased appetite
     Dosage: 500 MILLILITER, QD
     Route: 042

REACTIONS (1)
  - Neoplasm malignant [Fatal]

NARRATIVE: CASE EVENT DATE: 20220725
